FAERS Safety Report 7397057 (Version 4)
Quarter: 2013Q2

REPORT INFORMATION
  Report Type: Spontaneous
  Country: DE (occurrence: DE)
  Receive Date: 20100524
  Receipt Date: 20130426
  Transmission Date: 20140414
  Serious: Yes (Other)
  Sender: FDA-Public Use
  Company Number: DE-JNJFOC-20100507544

PATIENT
  Age: 46 Year
  Sex: Female

DRUGS (1)
  1. RISPERDAL CONSTA [Suspect]
     Indication: INJURY ASSOCIATED WITH DEVICE
     Route: 030

REACTIONS (3)
  - Exposure to contaminated device [Unknown]
  - Device malfunction [Unknown]
  - Injury associated with device [Unknown]
